FAERS Safety Report 17048714 (Version 1)
Quarter: 2019Q4

REPORT INFORMATION
  Report Type: Spontaneous
  Country: US (occurrence: US)
  Receive Date: 20191119
  Receipt Date: 20191119
  Transmission Date: 20200122
  Serious: Yes (Death, Other)
  Sender: FDA-Public Use
  Company Number: US-PFIZER INC-2019497013

PATIENT
  Age: 88 Year
  Sex: Female
  Weight: 58.97 kg

DRUGS (2)
  1. MORPHINE SULFATE. [Suspect]
     Active Substance: MORPHINE SULFATE
     Indication: PAIN
     Dosage: UNK
     Dates: start: 20191029, end: 20191029
  2. MORPHINE SULFATE. [Suspect]
     Active Substance: MORPHINE SULFATE
     Dosage: UNK
     Dates: start: 20191031, end: 20191031

REACTIONS (2)
  - Death [Fatal]
  - Foaming at mouth [Unknown]

NARRATIVE: CASE EVENT DATE: 20191031
